FAERS Safety Report 7749478-6 (Version None)
Quarter: 2011Q3

REPORT INFORMATION
  Report Type: 
  Country: None (occurrence: None)
  Receive Date: 20110914
  Receipt Date: 20110908
  Transmission Date: 20111222
  Serious: No
  Sender: FDA-Public Use
  Company Number: PHHY2011JP80063

PATIENT
  Age: 54 Year
  Sex: Male

DRUGS (5)
  1. ACETAMINOPHEN [Concomitant]
     Dosage: 600 MG, UNK
     Route: 054
     Dates: start: 20110905
  2. VOLTAREN [Suspect]
     Indication: PAIN
     Dosage: 150 MG, DAILY
     Route: 054
     Dates: start: 20110801, end: 20110905
  3. ACETAMINOPHEN [Suspect]
     Indication: PAIN
     Dosage: 1200 MG, DAILY
     Route: 048
     Dates: start: 20110825
  4. LOXONIN [Concomitant]
     Dosage: 60 MG, UNK
     Route: 048
     Dates: end: 20110805
  5. VOLTAREN [Suspect]
     Dosage: 25 MG, UNK
     Route: 048
     Dates: start: 20110905

REACTIONS (2)
  - PAIN [None]
  - DRUG EFFECT DECREASED [None]
